FAERS Safety Report 11857766 (Version 1)
Quarter: 2015Q4

REPORT INFORMATION
  Report Type: Spontaneous
  Country: US (occurrence: None)
  Receive Date: 20151221
  Receipt Date: 20151221
  Transmission Date: 20160305
  Serious: No
  Sender: FDA-Public Use
  Company Number: None

PATIENT
  Age: 16 Year
  Sex: Female
  Weight: 58.5 kg

DRUGS (8)
  1. BETHKIS [Suspect]
     Active Substance: TOBRAMYCIN
     Indication: BACTERIAL DISEASE CARRIER
     Route: 055
     Dates: start: 20150730, end: 20151218
  2. LORAZEPAM. [Concomitant]
     Active Substance: LORAZEPAM
  3. PULMOZYME [Concomitant]
     Active Substance: DORNASE ALFA
  4. RISPERDAL [Concomitant]
     Active Substance: RISPERIDONE
  5. SERTRALINE [Concomitant]
     Active Substance: SERTRALINE HYDROCHLORIDE
  6. LEVALBUTEROL HYPERSAL [Concomitant]
  7. PERTZYE [Concomitant]
     Active Substance: PANCRELIPASE AMYLASE\PANCRELIPASE LIPASE\PANCRELIPASE PROTEASE
  8. BENZTROPINE [Concomitant]
     Active Substance: BENZTROPINE

REACTIONS (3)
  - Retching [None]
  - Cough [None]
  - Erythema [None]

NARRATIVE: CASE EVENT DATE: 20151102
